FAERS Safety Report 10540951 (Version 1)
Quarter: 2014Q4

REPORT INFORMATION
  Report Type: Spontaneous
  Country: US (occurrence: None)
  Receive Date: 20141023
  Receipt Date: 20141023
  Transmission Date: 20150529
  Serious: Yes (Other)
  Sender: FDA-Public Use
  Company Number: None

PATIENT
  Age: 49 Year
  Sex: Female
  Weight: 88.45 kg

DRUGS (1)
  1. ABILIFY [Suspect]
     Active Substance: ARIPIPRAZOLE
     Indication: DEPRESSION
     Dosage: 2 MG INCREASED TO 5 MG ONCE DAILY TAKEN BY MOUTH
     Route: 048

REACTIONS (10)
  - Blepharospasm [None]
  - Nausea [None]
  - Flushing [None]
  - Tremor [None]
  - Somnolence [None]
  - Seizure [None]
  - Hot flush [None]
  - Insomnia [None]
  - Palpitations [None]
  - Weight increased [None]

NARRATIVE: CASE EVENT DATE: 20140817
